FAERS Safety Report 25032178 (Version 2)
Quarter: 2025Q2

REPORT INFORMATION
  Report Type: Spontaneous
  Country: IE (occurrence: IE)
  Receive Date: 20250303
  Receipt Date: 20250624
  Transmission Date: 20250716
  Serious: Yes (Other)
  Sender: MYLAN
  Company Number: IE-BIAL-BIAL-18225

PATIENT
  Sex: Female

DRUGS (12)
  1. LEVETIRACETAM [Concomitant]
     Active Substance: LEVETIRACETAM
     Indication: Epilepsy
  2. LEVETIRACETAM [Concomitant]
     Active Substance: LEVETIRACETAM
     Indication: Seizure
  3. ESLICARBAZEPINE [Suspect]
     Active Substance: ESLICARBAZEPINE
     Indication: Seizure
     Dosage: UNK UNK, QD (800 (400?1600), DAILY DOSE)
  4. ZONISAMIDE [Suspect]
     Active Substance: ZONISAMIDE
     Indication: Epilepsy
     Dosage: UNK, QD, 200 (150?400), DAILY DOSE
  5. LACOSAMIDE [Suspect]
     Active Substance: LACOSAMIDE
     Indication: Epilepsy
     Dosage: UNK, QD (350 (200?600), DAILY DOSE)
  6. BRIVARACETAM [Suspect]
     Active Substance: BRIVARACETAM
     Indication: Epilepsy
     Dosage: UNK, QD (150 (50?175), DAILY DOSE)
  7. FOLIC ACID [Suspect]
     Active Substance: FOLIC ACID
     Indication: Prophylaxis of neural tube defect
     Dosage: 5 MILLIGRAM, ONCE DAILY (QD)
  8. PERAMPANEL [Concomitant]
     Active Substance: PERAMPANEL
     Indication: Epilepsy
  9. LAMOTRIGINE [Concomitant]
     Active Substance: LAMOTRIGINE
     Indication: Epilepsy
  10. CARBAMAZEPINE [Concomitant]
     Active Substance: CARBAMAZEPINE
     Indication: Epilepsy
  11. PREGABALIN [Concomitant]
     Active Substance: PREGABALIN
     Indication: Epilepsy
  12. TOPIRAMATE [Concomitant]
     Active Substance: TOPIRAMATE
     Indication: Epilepsy

REACTIONS (7)
  - Abortion spontaneous [Recovered/Resolved]
  - Haemorrhage in pregnancy [Unknown]
  - Generalised tonic-clonic seizure [Unknown]
  - Seizure [Unknown]
  - Infection [Unknown]
  - Drug ineffective [Unknown]
  - Maternal exposure during pregnancy [Recovered/Resolved]
